FAERS Safety Report 15801093 (Version 1)
Quarter: 2019Q1

REPORT INFORMATION
  Report Type: Spontaneous
  Country: US (occurrence: US)
  Receive Date: 20190109
  Receipt Date: 20190109
  Transmission Date: 20190417
  Serious: Yes (Other)
  Sender: FDA-Public Use
  Company Number: US-009507513-1901USA000580

PATIENT
  Sex: Female
  Weight: 47.62 kg

DRUGS (1)
  1. NEXPLANON [Suspect]
     Active Substance: ETONOGESTREL
     Indication: CONTRACEPTION
     Dosage: 1 DOSAGE FORM (1 LEFT ARM-IMPLANT), EVERY 3 YEARS
     Route: 059
     Dates: start: 20181030

REACTIONS (8)
  - Suicidal ideation [Recovered/Resolved]
  - Circumstance or information capable of leading to medication error [Unknown]
  - Weight decreased [Not Recovered/Not Resolved]
  - Depression [Not Recovered/Not Resolved]
  - Mental impairment [Not Recovered/Not Resolved]
  - Asthenia [Not Recovered/Not Resolved]
  - Suicidal ideation [Recovered/Resolved]
  - Decreased appetite [Not Recovered/Not Resolved]

NARRATIVE: CASE EVENT DATE: 2018
